FAERS Safety Report 7344466-6 (Version None)
Quarter: 2011Q1

REPORT INFORMATION
  Report Type: 
  Country: None (occurrence: None)
  Receive Date: 20110310
  Receipt Date: 20110308
  Transmission Date: 20110831
  Serious: No
  Sender: FDA-Public Use
  Company Number: US-AMGEN-USASP2011010244

PATIENT
  Age: 74 Year
  Sex: Female

DRUGS (3)
  1. ASPIRIN [Concomitant]
     Dosage: UNK
  2. LIPITOR [Concomitant]
     Dosage: 1 MG, QD
  3. PROLIA [Suspect]
     Indication: OSTEOPOROSIS POSTMENOPAUSAL
     Dosage: 60 MG, Q6MO
     Dates: start: 20100922

REACTIONS (3)
  - BONE PAIN [None]
  - ARTHRALGIA [None]
  - BRONCHOSPASM [None]
